FAERS Safety Report 5113404-9 (Version None)
Quarter: 2006Q3

REPORT INFORMATION
  Report Type: 
  Country: None (occurrence: None)
  Receive Date: 20060920
  Receipt Date: 20060905
  Transmission Date: 20061208
  Serious: Yes (Death, Hospitalization)
  Sender: FDA-Public Use
  Company Number: 2006001747

PATIENT
  Age: 56 Year
  Sex: Female

DRUGS (15)
  1. TARCEVA [Suspect]
     Indication: LUNG NEOPLASM MALIGNANT
     Dosage: 150 MG (QD), ORAL
     Route: 048
     Dates: start: 20060313, end: 20060801
  2. OXIS TURBUHALER (FORMOTEROL) [Concomitant]
  3. ATACAND [Concomitant]
  4. EMCONCOR (BISOPROLOL) [Concomitant]
  5. KESTINE (EBASTINE) [Concomitant]
  6. OMEPRAZOLE [Concomitant]
  7. AREDIA [Concomitant]
  8. ACETAMINOPHEN [Concomitant]
  9. ERCO-FER (FERROUS FUMARATE) [Concomitant]
  10. BETAPRED [Concomitant]
  11. COCILLANA-ETYFIN (COCILLANA-ETYFIN) [Concomitant]
  12. THEO-DUR [Concomitant]
  13. ACETYLCYSTEINE [Concomitant]
  14. COMBIVENT [Concomitant]
  15. TRIOBE (TRIOBE) [Concomitant]

REACTIONS (7)
  - COUGH [None]
  - DIARRHOEA [None]
  - DYSPNOEA [None]
  - INFECTION IN AN IMMUNOCOMPROMISED HOST [None]
  - LUNG NEOPLASM MALIGNANT [None]
  - MALIGNANT NEOPLASM PROGRESSION [None]
  - RESPIRATORY TRACT INFECTION [None]
